FAERS Safety Report 5108867-9 (Version None)
Quarter: 2006Q3

REPORT INFORMATION
  Report Type: 
  Country: None (occurrence: None)
  Receive Date: 20060915
  Receipt Date: 20060915
  Transmission Date: 20061208
  Serious: No
  Sender: FDA-Public Use
  Company Number: None

PATIENT
  Age: 44 Year
  Sex: Female
  Weight: 68.0396 kg

DRUGS (7)
  1. NEURONTIN [Suspect]
     Indication: ANXIETY
     Dosage: 600MG   3X DAILY   PO
     Route: 048
     Dates: start: 20030321, end: 20040201
  2. NEURONTIN [Suspect]
     Indication: BIPOLAR DISORDER
     Dosage: 600MG   3X DAILY   PO
     Route: 048
     Dates: start: 20030321, end: 20040201
  3. NEURONTIN [Suspect]
     Indication: SOCIAL PHOBIA
     Dosage: 600MG   3X DAILY   PO
     Route: 048
     Dates: start: 20030321, end: 20040201
  4. EFFEXOR XR [Concomitant]
  5. CLONAZEPAM [Concomitant]
  6. ESKALITH CR [Concomitant]
  7. SEROQUEL [Concomitant]

REACTIONS (6)
  - ANXIETY [None]
  - BIPOLAR DISORDER [None]
  - NERVOUS SYSTEM DISORDER [None]
  - ROAD TRAFFIC ACCIDENT [None]
  - SOCIAL PHOBIA [None]
  - SOMNOLENCE [None]
